FAERS Safety Report 23320305 (Version 5)
Quarter: 2024Q3

REPORT INFORMATION
  Report Type: Spontaneous
  Country: CO (occurrence: CO)
  Receive Date: 20231220
  Receipt Date: 20240827
  Transmission Date: 20241016
  Serious: Yes (Hospitalization, Other)
  Sender: GLAXOSMITHKLINE
  Company Number: CO-GLAXOSMITHKLINE-CO2023AMR175578

PATIENT

DRUGS (2)
  1. NUCALA [Suspect]
     Active Substance: MEPOLIZUMAB
     Indication: Asthma
     Dosage: 100 MG, MO (INJECTION)
     Dates: start: 20231211, end: 20240720
  2. MORPHINE [Concomitant]
     Active Substance: MORPHINE
     Indication: Product used for unknown indication
     Dosage: 20 DROPS TID (EVERY 8 HOURS)

REACTIONS (18)
  - Headache [Recovered/Resolved]
  - Gait inability [Recovered/Resolved]
  - Coagulopathy [Recovered/Resolved]
  - Vertigo [Recovered/Resolved]
  - Aspiration bone marrow [Recovered/Resolved]
  - Hospitalisation [Recovered/Resolved]
  - Choking [Recovered/Resolved]
  - Asthma [Not Recovered/Not Resolved]
  - Pyrexia [Not Recovered/Not Resolved]
  - Wheezing [Recovered/Resolved]
  - Dyspnoea [Unknown]
  - Cough [Not Recovered/Not Resolved]
  - Vomiting [Recovered/Resolved]
  - Pallor [Recovered/Resolved]
  - Discomfort [Not Recovered/Not Resolved]
  - Illness [Not Recovered/Not Resolved]
  - Lumbar puncture [Unknown]
  - Product dose omission issue [Unknown]

NARRATIVE: CASE EVENT DATE: 20231211
